FAERS Safety Report 5905360-8 (Version None)
Quarter: 2008Q4

REPORT INFORMATION
  Report Type: 
  Country: None (occurrence: None)
  Receive Date: 20081001
  Receipt Date: 20080922
  Transmission Date: 20090506
  Serious: Yes (Death)
  Sender: FDA-Public Use
  Company Number: ZA-PFIZER INC-2008080031

PATIENT
  Sex: Male
  Weight: 48 kg

DRUGS (8)
  1. IRINOTECAN HCL [Suspect]
     Indication: COLORECTAL CANCER
     Route: 042
     Dates: start: 20080514
  2. BLINDED SU11248 (SU011248) [Suspect]
     Indication: COLORECTAL CANCER
     Route: 048
     Dates: start: 20080514
  3. FLUOROURACIL [Suspect]
     Indication: COLORECTAL CANCER
     Route: 042
     Dates: start: 20080514
  4. FLUOROURACIL [Suspect]
     Route: 042
     Dates: start: 20080514
  5. CALCIUM FOLINATE [Suspect]
     Indication: COLORECTAL CANCER
     Dosage: TEXT:328
     Route: 042
     Dates: start: 20080514
  6. LOPERAMIDE HCL [Concomitant]
     Indication: DIARRHOEA
     Dates: start: 20080916
  7. CIPROFLOXACIN [Concomitant]
     Indication: ANTIBIOTIC THERAPY
     Dates: start: 20080916
  8. SLOW-K [Concomitant]
     Indication: BLOOD POTASSIUM DECREASED
     Dosage: TEXT:2 TABLETS
     Route: 048
     Dates: start: 20080916

REACTIONS (1)
  - RESPIRATORY FAILURE [None]
